FAERS Safety Report 6691460-4 (Version None)
Quarter: 2010Q2

REPORT INFORMATION
  Report Type: 
  Country: None (occurrence: None)
  Receive Date: 20100422
  Receipt Date: 20100413
  Transmission Date: 20101027
  Serious: Yes (Death, Hospitalization)
  Sender: FDA-Public Use
  Company Number: US-MPIJNJ-2010-02141

PATIENT
  Sex: Male
  Weight: 91.7 kg

DRUGS (2)
  1. VELCADE [Suspect]
     Indication: ACUTE MYELOID LEUKAEMIA
     Dosage: 2.7 MG, CYCLIC
     Route: 042
     Dates: start: 20100308, end: 20100408
  2. VORINOSTAT [Suspect]
     Indication: ACUTE MYELOID LEUKAEMIA
     Dosage: 400 MG, CYCLIC
     Route: 048
     Dates: start: 20100308, end: 20100411

REACTIONS (1)
  - FEBRILE NEUTROPENIA [None]
